FAERS Safety Report 7179804-0 (Version None)
Quarter: 2010Q4

REPORT INFORMATION
  Report Type: 
  Country: None (occurrence: None)
  Receive Date: 20101221
  Receipt Date: 20101214
  Transmission Date: 20110411
  Serious: Yes (Death)
  Sender: FDA-Public Use
  Company Number: US-ROCHE-742666

PATIENT
  Sex: Female

DRUGS (3)
  1. AVASTIN [Suspect]
     Indication: NON-SMALL CELL LUNG CANCER
     Route: 042
     Dates: end: 20100901
  2. CARBOPLATIN [Concomitant]
  3. TAXOL [Concomitant]

REACTIONS (1)
  - BRONCHOPULMONARY ASPERGILLOSIS [None]
